FAERS Safety Report 9027741 (Version 3)
Quarter: 2013Q1

REPORT INFORMATION
  Report Type: Report from Study
  Country: NL (occurrence: NL)
  Receive Date: 20130123
  Receipt Date: 20130212
  Transmission Date: 20140127
  Serious: Yes (Hospitalization)
  Sender: FDA-Public Use
  Company Number: NL-JNJFOC-20130110961

PATIENT
  Sex: Female
  Weight: 58 kg

DRUGS (2)
  1. INFLIXIMAB, RECOMBINANT [Suspect]
     Indication: CROHN^S DISEASE
     Route: 042
     Dates: start: 20120724
  2. AZATHIOPRINE [Concomitant]

REACTIONS (1)
  - Ileal stenosis [Recovered/Resolved]
